FAERS Safety Report 23581392 (Version 1)
Quarter: 2024Q1

REPORT INFORMATION
  Report Type: Spontaneous
  Country: CA (occurrence: CA)
  Receive Date: 20240229
  Receipt Date: 20240229
  Transmission Date: 20240409
  Serious: Yes (Other)
  Sender: FDA-Public Use
  Company Number: CA-KARYOPHARM-2024KPT000621

PATIENT

DRUGS (2)
  1. XPOVIO [Suspect]
     Active Substance: SELINEXOR
     Indication: Malignant neoplasm of unknown primary site
     Dosage: UNK
  2. ASPIRIN [Concomitant]
     Active Substance: ASPIRIN

REACTIONS (2)
  - Gastrointestinal haemorrhage [Unknown]
  - Platelet count decreased [Unknown]
